FAERS Safety Report 23677234 (Version 2)
Quarter: 2024Q2

REPORT INFORMATION
  Report Type: Report from Study
  Country: IN (occurrence: IN)
  Receive Date: 20240327
  Receipt Date: 20240625
  Transmission Date: 20240716
  Serious: Yes (Other)
  Sender: FDA-Public Use
  Company Number: IN-002147023-NVSC2023IN280311

PATIENT
  Age: 79 Year
  Sex: Female

DRUGS (2)
  1. RIBOCICLIB [Suspect]
     Active Substance: RIBOCICLIB
     Indication: Hormone receptor positive HER2 negative breast cancer
     Dosage: 400 MG, QD
     Route: 048
     Dates: start: 20220505
  2. RIBOCICLIB [Suspect]
     Active Substance: RIBOCICLIB
     Indication: Breast cancer metastatic
     Dosage: 600 MG, QD
     Route: 048

REACTIONS (22)
  - Neuropathy peripheral [Unknown]
  - Pulmonary mass [Unknown]
  - Back pain [Unknown]
  - Pain in extremity [Unknown]
  - Blood pressure increased [Unknown]
  - Pain [Unknown]
  - Neutrophil count abnormal [Unknown]
  - Blood creatine increased [Unknown]
  - Blood urea increased [Unknown]
  - Performance status decreased [Unknown]
  - Respiratory rate increased [Unknown]
  - Bone lesion [Unknown]
  - Tenderness [Unknown]
  - Full blood count abnormal [Unknown]
  - Gait disturbance [Unknown]
  - Dysstasia [Unknown]
  - Insomnia [Unknown]
  - Peripheral swelling [Unknown]
  - Headache [Unknown]
  - Shoulder deformity [Unknown]
  - Vomiting [Unknown]
  - Oedema [Unknown]

NARRATIVE: CASE EVENT DATE: 20220603
